FAERS Safety Report 25522694 (Version 1)
Quarter: 2025Q3

REPORT INFORMATION
  Report Type: Spontaneous
  Country: GB (occurrence: GB)
  Receive Date: 20250707
  Receipt Date: 20250707
  Transmission Date: 20251021
  Serious: Yes (Other)
  Sender: AUROBINDO
  Company Number: GB-MHRA-MED-202506231955497900-FRZDP

PATIENT
  Age: 33 Year
  Sex: Female
  Weight: 60 kg

DRUGS (3)
  1. MIRTAZAPINE [Suspect]
     Active Substance: MIRTAZAPINE
     Indication: Depression
     Dosage: 7.5 MILLIGRAM, ONCE A DAY
     Route: 065
     Dates: start: 20250620, end: 20250622
  2. FLUOXETINE [Concomitant]
     Active Substance: FLUOXETINE HYDROCHLORIDE
     Indication: Depression
     Route: 065
     Dates: start: 20120601
  3. METHYLPHENIDATE [Concomitant]
     Active Substance: METHYLPHENIDATE
     Indication: Attention deficit hyperactivity disorder
     Route: 065
     Dates: start: 20170303

REACTIONS (8)
  - Tearfulness [Not Recovered/Not Resolved]
  - Self-injurious ideation [Recovering/Resolving]
  - Fatigue [Recovering/Resolving]
  - Increased appetite [Recovering/Resolving]
  - Irritability [Recovering/Resolving]
  - Listless [Recovering/Resolving]
  - Emotional poverty [Recovering/Resolving]
  - Apathy [Recovering/Resolving]
